FAERS Safety Report 25154398 (Version 1)
Quarter: 2025Q2

REPORT INFORMATION
  Report Type: Spontaneous
  Country: CN (occurrence: CN)
  Receive Date: 20250403
  Receipt Date: 20250403
  Transmission Date: 20250717
  Serious: Yes (Life-Threatening, Other)
  Sender: COSETTE PHARMACEUTICALS
  Company Number: CN-SA-2025SA085634

PATIENT
  Age: 70 Year
  Sex: Female

DRUGS (1)
  1. AMBIEN [Suspect]
     Active Substance: ZOLPIDEM TARTRATE
     Indication: Sleep disorder
     Route: 048
     Dates: start: 20250205, end: 20250224

REACTIONS (2)
  - Syncope [Recovered/Resolved]
  - Depressed level of consciousness [Recovered/Resolved]

NARRATIVE: CASE EVENT DATE: 20250224
